FAERS Safety Report 4718233-3 (Version None)
Quarter: 2005Q3

REPORT INFORMATION
  Report Type: 
  Country: None (occurrence: None)
  Receive Date: 20050718
  Receipt Date: 20050124
  Transmission Date: 20060218
  Serious: No
  Sender: FDA-Public Use
  Company Number: 2005000183

PATIENT
  Age: 40 Year
  Sex: Male

DRUGS (2)
  1. TARCEVA [Suspect]
     Indication: NON-SMALL CELL LUNG CANCER
     Dosage: 150 MG (PO QD), ORAL
     Route: 048
     Dates: start: 20041215, end: 20050109
  2. TARCEVA [Suspect]
     Indication: NON-SMALL CELL LUNG CANCER
     Dosage: 150 MG (PO QD), ORAL
     Route: 048
     Dates: start: 20050109

REACTIONS (3)
  - DRY SKIN [None]
  - RASH [None]
  - SINUSITIS [None]
